FAERS Safety Report 19583569 (Version 6)
Quarter: 2022Q4

REPORT INFORMATION
  Report Type: Report from Study
  Country: JP (occurrence: JP)
  Receive Date: 20210720
  Receipt Date: 20221111
  Transmission Date: 20230113
  Serious: Yes (Hospitalization, Other)
  Sender: FDA-Public Use
  Company Number: JP-ABBVIE-21K-087-3996689-00

PATIENT
  Age: 54 Year
  Sex: Male
  Weight: 63 kg

DRUGS (2)
  1. CARBIDOPA\LEVODOPA [Suspect]
     Active Substance: CARBIDOPA\LEVODOPA
     Indication: Parkinson^s disease
     Dosage: MD: 14 ML?CD: 3 ML/HR X 16 HRS?ED: 1 ML/UNIT; 1 TIME
     Route: 050
     Dates: start: 20181031
  2. CARBIDOPA\LEVODOPA [Suspect]
     Active Substance: CARBIDOPA\LEVODOPA

REACTIONS (6)
  - Bezoar [Recovered/Resolved]
  - Device kink [Recovered/Resolved]
  - Dopamine dysregulation syndrome [Unknown]
  - Intentional device misuse [Unknown]
  - Device occlusion [Recovered/Resolved]
  - Abdominal pain [Recovered/Resolved]

NARRATIVE: CASE EVENT DATE: 20190218
